FAERS Safety Report 15122289 (Version 1)
Quarter: 2018Q3

REPORT INFORMATION
  Report Type: Spontaneous
  Country: US (occurrence: US)
  Receive Date: 20180709
  Receipt Date: 20180709
  Transmission Date: 20181010
  Serious: No
  Sender: FDA-Public Use
  Company Number: US-JEROME STEVENS PHARMACEUTICALS, INC.-2051588

PATIENT
  Sex: Female

DRUGS (4)
  1. SYNTHROID [Suspect]
     Active Substance: LEVOTHYROXINE SODIUM
  2. LEVOXYL [Suspect]
     Active Substance: LEVOTHYROXINE SODIUM
  3. UNITHROID [Suspect]
     Active Substance: LEVOTHYROXINE SODIUM
  4. TIROSINT [Suspect]
     Active Substance: LEVOTHYROXINE SODIUM

REACTIONS (2)
  - Adverse event [None]
  - Weight increased [None]
